FAERS Safety Report 8862644 (Version 2)
Quarter: 2012Q4

REPORT INFORMATION
  Report Type: 
  Country: US (occurrence: US)
  Receive Date: 20121026
  Receipt Date: 20121105
  Transmission Date: 20130627
  Serious: Yes (Other)
  Sender: FDA-Public Use
  Company Number: US-ELI_LILLY_AND_COMPANY-US201210005504

PATIENT
  Sex: Female
  Weight: 95.69 kg

DRUGS (2)
  1. ZYPREXA [Suspect]
     Indication: MOOD ALTERED
     Dosage: 2.5 mg, qd
  2. OLANZAPINE [Suspect]
     Indication: MOOD ALTERED
     Dosage: 2.5 mg, qd
     Route: 048

REACTIONS (2)
  - Weight increased [Unknown]
  - Off label use [Unknown]
